FAERS Safety Report 5293947-8 (Version None)
Quarter: 2007Q2

REPORT INFORMATION
  Report Type: 
  Country: None (occurrence: None)
  Receive Date: 20070411
  Receipt Date: 20070330
  Transmission Date: 20071010
  Serious: Yes (Other)
  Sender: FDA-Public Use
  Company Number: FR-PFIZER INC-2007027706

PATIENT
  Sex: Male

DRUGS (1)
  1. GENOTROPIN [Suspect]

REACTIONS (1)
  - PROSTATE CANCER [None]
